FAERS Safety Report 21528703 (Version 2)
Quarter: 2022Q4

REPORT INFORMATION
  Report Type: Spontaneous
  Country: CA (occurrence: CA)
  Receive Date: 20221031
  Receipt Date: 20221104
  Transmission Date: 20230112
  Serious: Yes (Other)
  Sender: FDA-Public Use
  Company Number: CA-ALXN-A202211716

PATIENT
  Sex: Female

DRUGS (1)
  1. SOLIRIS [Suspect]
     Active Substance: ECULIZUMAB
     Indication: Neuromyelitis optica spectrum disorder
     Dosage: UNK
     Route: 065

REACTIONS (6)
  - Herpes zoster oticus [Unknown]
  - Ophthalmic herpes zoster [Unknown]
  - Rib fracture [Unknown]
  - Herpes zoster [Unknown]
  - Hypoacusis [Unknown]
  - Fatigue [Unknown]
